FAERS Safety Report 9228302 (Version 1)
Quarter: 2013Q1

REPORT INFORMATION
  Report Type: Spontaneous
  Country: US (occurrence: None)
  Receive Date: 20121024
  Receipt Date: 20121024
  Transmission Date: 20140127
  Serious: Yes (Hospitalization)
  Sender: FDA-Public Use
  Company Number: DSA_57458_2012

PATIENT
  Age: 72 Year
  Sex: Female

DRUGS (1)
  1. WELLBUTRIN XR [Suspect]
     Indication: PRODUCT USED FOR UNKNOWN INDICATION
     Route: 048

REACTIONS (2)
  - Grand mal convulsion [None]
  - Confusional state [None]
